FAERS Safety Report 5688158-8 (Version None)
Quarter: 2008Q1

REPORT INFORMATION
  Report Type: 
  Country: None (occurrence: None)
  Receive Date: 20080327
  Receipt Date: 20080312
  Transmission Date: 20080703
  Serious: Yes (Other)
  Sender: FDA-Public Use
  Company Number: 2008S1004208

PATIENT
  Age: 60 Year
  Sex: Male

DRUGS (6)
  1. LISINOPRIL [Suspect]
     Indication: HYPERTENSION
     Dosage: DAILY
  2. ASPIRIN [Concomitant]
  3. ATORVASTATIN [Concomitant]
  4. METFORMIN HCL [Concomitant]
  5. PIOGLITAZONE [Concomitant]
  6. VARDENAFIL [Concomitant]

REACTIONS (2)
  - DRUG INEFFECTIVE [None]
  - HYPERTENSION [None]
